FAERS Safety Report 6154602-5 (Version None)
Quarter: 2009Q2

REPORT INFORMATION
  Report Type: 
  Country: None (occurrence: None)
  Receive Date: 20090414
  Receipt Date: 20090330
  Transmission Date: 20091009
  Serious: Yes (Death)
  Sender: FDA-Public Use
  Company Number: US-ROCHE-625743

PATIENT

DRUGS (5)
  1. MYCOPHENOLATE MOFETIL [Suspect]
     Indication: RENAL TRANSPLANT
     Route: 065
  2. TACROLIMUS [Suspect]
     Indication: RENAL TRANSPLANT
     Dosage: DOSE;10-15 NG/ML DURING THE FIRST 4 WEEKS THEN DECREASED TO 5-10NG/ML THERE AFTER.
     Route: 065
  3. CORTICOSTEROIDS [Suspect]
     Indication: RENAL TRANSPLANT
     Route: 065
  4. PREDNISONE TAB [Suspect]
     Indication: RENAL TRANSPLANT
     Route: 065
  5. PREDNISONE TAB [Suspect]
     Route: 065

REACTIONS (1)
  - DEATH [None]
